FAERS Safety Report 23619141 (Version 1)
Quarter: 2024Q1

REPORT INFORMATION
  Report Type: Spontaneous
  Country: CN (occurrence: CN)
  Receive Date: 20240311
  Receipt Date: 20240311
  Transmission Date: 20240410
  Serious: Yes (Life-Threatening, Hospitalization, Other)
  Sender: FDA-Public Use
  Company Number: CN-002147023-NVSC2024CN052069

PATIENT
  Age: 5 Year
  Sex: Male
  Weight: 26.5 kg

DRUGS (4)
  1. OXCARBAZEPINE [Suspect]
     Active Substance: OXCARBAZEPINE
     Indication: Epilepsy
     Dosage: 300 MG, BID
     Route: 048
     Dates: start: 20230918, end: 20240226
  2. OXCARBAZEPINE [Suspect]
     Active Substance: OXCARBAZEPINE
     Dosage: 150 MG, QD
     Route: 065
     Dates: start: 20240226
  3. VALPROATE SODIUM [Concomitant]
     Active Substance: VALPROATE SODIUM
     Indication: Epilepsy
     Dosage: 5 ML, TID
     Route: 048
     Dates: start: 20230918, end: 20240226
  4. PERAMPANEL [Concomitant]
     Active Substance: PERAMPANEL
     Indication: Epilepsy
     Dosage: 6 MG, QD
     Route: 048
     Dates: start: 20230918, end: 20240216

REACTIONS (12)
  - Hyponatraemia [Recovering/Resolving]
  - Upper respiratory tract infection [Unknown]
  - Blood glucose increased [Unknown]
  - Aspartate aminotransferase [Unknown]
  - Tardive dyskinesia [Unknown]
  - Seizure [Unknown]
  - Excessive eye blinking [Unknown]
  - Drooling [Unknown]
  - Tremor [Unknown]
  - Pyrexia [Unknown]
  - Confusional state [Unknown]
  - Therapeutic response decreased [Unknown]

NARRATIVE: CASE EVENT DATE: 20240225
